FAERS Safety Report 7521252-5 (Version None)
Quarter: 2011Q2

REPORT INFORMATION
  Report Type: 
  Country: None (occurrence: None)
  Receive Date: 20110524
  Receipt Date: 20110510
  Transmission Date: 20111010
  Serious: Yes (Other)
  Sender: FDA-Public Use
  Company Number: JPI-P-015050

PATIENT
  Age: 42 Year
  Sex: Female

DRUGS (3)
  1. XYREM [Suspect]
     Indication: NARCOLEPSY
     Dosage: 4.5GM (2.25 GM, 2 IN  1 D),ORAL, ORAL, 7.5 GM (3.75 GM,2 IN 1 D),ORAL
     Route: 048
     Dates: start: 20110406, end: 20110401
  2. XYREM [Suspect]
     Indication: NARCOLEPSY
     Dosage: 4.5GM (2.25 GM, 2 IN  1 D),ORAL, ORAL, 7.5 GM (3.75 GM,2 IN 1 D),ORAL
     Route: 048
     Dates: start: 20110401, end: 20110401
  3. XYREM [Suspect]
     Indication: NARCOLEPSY
     Dosage: 4.5GM (2.25 GM, 2 IN  1 D),ORAL, ORAL, 7.5 GM (3.75 GM,2 IN 1 D),ORAL
     Route: 048
     Dates: start: 20110429

REACTIONS (2)
  - MASS [None]
  - OVARIAN CYST [None]
